FAERS Safety Report 25413564 (Version 1)
Quarter: 2025Q2

REPORT INFORMATION
  Report Type: Spontaneous
  Country: US (occurrence: US)
  Receive Date: 20250609
  Receipt Date: 20250609
  Transmission Date: 20250716
  Serious: No
  Sender: BAYER HEALTHCARE LLC
  Company Number: US-BAYER-2025A072839

PATIENT
  Age: 82 Year
  Sex: Female

DRUGS (3)
  1. CLARITIN LIQUI-GELS [Suspect]
     Active Substance: LORATADINE
     Indication: Rhinorrhoea
     Dosage: 1 DF, QD
     Route: 048
     Dates: start: 20250520, end: 20250528
  2. CLARITIN LIQUI-GELS [Suspect]
     Active Substance: LORATADINE
     Indication: Sneezing
  3. CLARITIN LIQUI-GELS [Suspect]
     Active Substance: LORATADINE
     Indication: Prophylaxis

REACTIONS (2)
  - Drug ineffective [Recovering/Resolving]
  - Product packaging difficult to open [None]

NARRATIVE: CASE EVENT DATE: 20250520
